FAERS Safety Report 17423455 (Version 2)
Quarter: 2022Q3

REPORT INFORMATION
  Report Type: Other
  Country: LT (occurrence: LT)
  Receive Date: 20200217
  Receipt Date: 20220810
  Transmission Date: 20221027
  Serious: Yes (Hospitalization)
  Sender: FDA-Public Use
  Company Number: LT-JNJFOC-20200134034

PATIENT
  Age: 32 Year
  Sex: Male

DRUGS (27)
  1. VALGANCICLOVIR [Suspect]
     Active Substance: VALGANCICLOVIR
     Indication: Product used for unknown indication
     Route: 065
  2. MYCOPHENOLATE MOFETIL [Suspect]
     Active Substance: MYCOPHENOLATE MOFETIL
     Indication: Product used for unknown indication
     Dosage: MORNING AND EVENING
     Route: 065
  3. MYCOPHENOLATE MOFETIL [Suspect]
     Active Substance: MYCOPHENOLATE MOFETIL
     Dosage: 500 MG IN THE MORNING, 1000 MG IN THE EVENING
     Route: 065
  4. ALLOPURINOL [Suspect]
     Active Substance: ALLOPURINOL
     Indication: Product used for unknown indication
     Dosage: EVERY MORNING
     Route: 065
  5. PALIPERIDONE [Suspect]
     Active Substance: PALIPERIDONE
     Indication: Product used for unknown indication
     Route: 065
  6. RISPERDAL [Suspect]
     Active Substance: RISPERIDONE
     Indication: Schizophrenia
     Route: 065
  7. OLANZAPINE [Suspect]
     Active Substance: OLANZAPINE
     Indication: Schizophrenia
     Route: 065
  8. METOPROLOL [Suspect]
     Active Substance: METOPROLOL
     Indication: Product used for unknown indication
     Route: 065
  9. METOPROLOL [Suspect]
     Active Substance: METOPROLOL
     Dosage: EVERY MORNING
     Route: 065
  10. AMLODIPINE [Suspect]
     Active Substance: AMLODIPINE BESYLATE
     Indication: Product used for unknown indication
     Route: 065
  11. AMLODIPINE [Suspect]
     Active Substance: AMLODIPINE BESYLATE
     Route: 065
  12. METHYLPREDNISOLONE [Suspect]
     Active Substance: METHYLPREDNISOLONE
     Indication: Product used for unknown indication
     Dosage: EVERY MORNING
     Route: 065
  13. METHYLPREDNISOLONE [Suspect]
     Active Substance: METHYLPREDNISOLONE
     Route: 065
  14. OMEPRAZOLE [Suspect]
     Active Substance: OMEPRAZOLE
     Indication: Product used for unknown indication
     Route: 065
  15. OMEPRAZOLE [Suspect]
     Active Substance: OMEPRAZOLE
     Route: 065
  16. TACROLIMUS [Suspect]
     Active Substance: TACROLIMUS
     Indication: Product used for unknown indication
     Route: 065
  17. QUETIAPINE [Suspect]
     Active Substance: QUETIAPINE
     Indication: Product used for unknown indication
     Dosage: DOSE INCREASED TO 700 MG
     Route: 065
  18. QUETIAPINE [Suspect]
     Active Substance: QUETIAPINE
     Route: 065
     Dates: start: 2018
  19. MOXONIDINE [Suspect]
     Active Substance: MOXONIDINE
     Indication: Product used for unknown indication
     Route: 065
  20. TIAPRIDE [Suspect]
     Active Substance: TIAPRIDE
     Indication: Product used for unknown indication
     Route: 065
     Dates: start: 2018
  21. TIAPRIDE [Suspect]
     Active Substance: TIAPRIDE
     Route: 065
  22. METOPROLOL SUCCINATE [Suspect]
     Active Substance: METOPROLOL SUCCINATE
     Indication: Product used for unknown indication
     Route: 065
  23. CLOZAPINE [Suspect]
     Active Substance: CLOZAPINE
     Indication: Schizophrenia
     Route: 065
  24. CLOZAPINE [Suspect]
     Active Substance: CLOZAPINE
     Route: 065
  25. DOXAZOSIN [Suspect]
     Active Substance: DOXAZOSIN MESYLATE
     Indication: Product used for unknown indication
     Dosage: BEFORE SLEEP
     Route: 065
  26. LERCANIDIPINE HYDROCHLORIDE [Suspect]
     Active Substance: LERCANIDIPINE HYDROCHLORIDE
     Indication: Product used for unknown indication
     Route: 065
  27. FOSINOPRIL [Suspect]
     Active Substance: FOSINOPRIL
     Indication: Product used for unknown indication
     Route: 065

REACTIONS (11)
  - Condition aggravated [Recovered/Resolved]
  - Behaviour disorder [Recovered/Resolved]
  - Neuroleptic malignant syndrome [Unknown]
  - Schizophrenia [Unknown]
  - Drug resistance [Unknown]
  - Inappropriate affect [Unknown]
  - Thinking abnormal [Not Recovered/Not Resolved]
  - Delusion [Recovered/Resolved]
  - Insomnia [Recovered/Resolved]
  - Apathy [Recovered/Resolved]
  - Drug ineffective [Unknown]
